FAERS Safety Report 5622273-X (Version None)
Quarter: 2008Q1

REPORT INFORMATION
  Report Type: 
  Country: None (occurrence: None)
  Receive Date: 20080211
  Receipt Date: 20080130
  Transmission Date: 20080703
  Serious: Yes (Other)
  Sender: FDA-Public Use
  Company Number: FR-ROCHE-545257

PATIENT
  Age: 57 Year
  Sex: Male

DRUGS (3)
  1. INTERFERON ALFA [Suspect]
     Route: 065
  2. INTERFERON ALFA [Suspect]
     Route: 065
  3. FONZYLANE [Concomitant]
     Indication: ARTERITIS

REACTIONS (2)
  - ATRIOVENTRICULAR BLOCK COMPLETE [None]
  - DYSPNOEA [None]
